FAERS Safety Report 21321681 (Version 1)
Quarter: 2022Q3

REPORT INFORMATION
  Report Type: Report from Study
  Country: BR (occurrence: BR)
  Receive Date: 20220912
  Receipt Date: 20220912
  Transmission Date: 20221026
  Serious: Yes (Hospitalization, Other)
  Sender: FDA-Public Use
  Company Number: BR-BoehringerIngelheim-2022-BI-190697

PATIENT
  Age: 65 Year
  Sex: Female
  Weight: 75 kg

DRUGS (14)
  1. OFEV [Suspect]
     Active Substance: NINTEDANIB
     Indication: Product used for unknown indication
     Dosage: THE FIRST DOSE AT 09:30 AM AND THE SECOND DOSE AT 9:30 PM
     Route: 048
     Dates: start: 20220722
  2. Basaglar insulina [Concomitant]
     Indication: Product used for unknown indication
     Dosage: AT MORNING
  3. NOVORAPID [Concomitant]
     Active Substance: INSULIN ASPART
     Indication: Product used for unknown indication
     Dosage: ADMINISTER 3 TIMES A DAY: 4 IU IN THE MORNING/ 10 IU FOR LUNCH/ 8 IU FOR DINNER.
     Dates: start: 202204
  4. Benicar HCT 12,5 [Concomitant]
     Indication: Product used for unknown indication
     Dosage: IN THE MORNING
  5. BISOPROLOL FUMARATE [Concomitant]
     Active Substance: BISOPROLOL FUMARATE
     Indication: Drug therapy
     Dosage: IN THE AFTERNOON
  6. Oxalato de Citalopran [Concomitant]
     Indication: Product used for unknown indication
     Dosage: IN THE MORNING
  7. OMEPRAZOLE [Concomitant]
     Active Substance: OMEPRAZOLE
     Indication: Product used for unknown indication
     Dosage: IN THE MORNING
  8. Montilium (Domperidona) [Concomitant]
     Indication: Product used for unknown indication
     Dosage: 1 TABLET OF 10 MG BEFORE MEALS
  9. ASPIRIN [Concomitant]
     Active Substance: ASPIRIN
     Indication: Product used for unknown indication
     Dates: end: 20220823
  10. Meticortem [Concomitant]
     Indication: Product used for unknown indication
  11. Meticortem [Concomitant]
  12. Meticortem [Concomitant]
  13. RYBELSUS [Concomitant]
     Active Substance: SEMAGLUTIDE
     Indication: Diabetes mellitus
     Dosage: IN THE MORNING ON AN EMPTY STOMACH
     Dates: end: 202208
  14. LOVASTATIN [Concomitant]
     Active Substance: LOVASTATIN
     Indication: Product used for unknown indication
     Dosage: AT NIGHT

REACTIONS (3)
  - Brain abscess [Not Recovered/Not Resolved]
  - Headache [Unknown]
  - Post procedural complication [Unknown]
